FAERS Safety Report 11644602 (Version 1)
Quarter: 2015Q4

REPORT INFORMATION
  Report Type: Spontaneous
  Country: US (occurrence: None)
  Receive Date: 20151019
  Receipt Date: 20151019
  Transmission Date: 20160304
  Serious: No
  Sender: FDA-Public Use
  Company Number: None

PATIENT
  Age: 50 Year
  Sex: Female
  Weight: 99.79 kg

DRUGS (1)
  1. VERAPAMIL [Suspect]
     Active Substance: VERAPAMIL HYDROCHLORIDE
     Indication: MIGRAINE
     Dosage: 1
     Route: 048
     Dates: start: 20150916, end: 20150925

REACTIONS (3)
  - Dysarthria [None]
  - Swollen tongue [None]
  - Aphasia [None]

NARRATIVE: CASE EVENT DATE: 20150923
